FAERS Safety Report 22605852 (Version 1)
Quarter: 2023Q2

REPORT INFORMATION
  Report Type: Spontaneous
  Country: US (occurrence: None)
  Receive Date: 20230614
  Receipt Date: 20230614
  Transmission Date: 20230722
  Serious: Yes (Hospitalization)
  Sender: FDA-Public Use
  Company Number: None

PATIENT
  Age: 31 Year
  Sex: Female
  Weight: 93.44 kg

DRUGS (1)
  1. MIRENA [Suspect]
     Active Substance: LEVONORGESTREL
     Dates: start: 20160920, end: 20190602

REACTIONS (3)
  - Abdominal pain [None]
  - Dizziness [None]
  - Ovarian cyst ruptured [None]

NARRATIVE: CASE EVENT DATE: 20190521
